FAERS Safety Report 6678702-6 (Version None)
Quarter: 2010Q2

REPORT INFORMATION
  Report Type: 
  Country: None (occurrence: None)
  Receive Date: 20100413
  Receipt Date: 20100401
  Transmission Date: 20101027
  Serious: Yes (Other)
  Sender: FDA-Public Use
  Company Number: PHHY2010ZA20999

PATIENT
  Sex: Female

DRUGS (7)
  1. CARBAMAZEPINE [Suspect]
     Indication: DEPRESSED MOOD
     Dosage: UNK
  2. CILEST [Interacting]
     Indication: CONTRACEPTION
     Dosage: UNK
  3. FEMODENE [Interacting]
     Indication: CONTRACEPTION
     Dosage: 01 TABLET EACH DAY
  4. FEMODENE [Interacting]
     Dosage: 02 TABLET A DAY
  5. CITALOPRAM HYDROBROMIDE [Concomitant]
     Dosage: UNK
  6. DICLOFENAC SODIUM [Concomitant]
     Dosage: UNK
  7. SALBUTAMOL [Concomitant]
     Dosage: UNK

REACTIONS (5)
  - ABORTION INDUCED [None]
  - ARTHRALGIA [None]
  - DRUG EXPOSURE DURING PREGNANCY [None]
  - DRUG INTERACTION [None]
  - SURGERY [None]
